FAERS Safety Report 24601158 (Version 1)
Quarter: 2024Q4

REPORT INFORMATION
  Report Type: Spontaneous
  Country: GB (occurrence: GB)
  Receive Date: 20241110
  Receipt Date: 20241110
  Transmission Date: 20250114
  Serious: Yes (Hospitalization, Other)
  Sender: Haleon PLC
  Company Number: None

PATIENT
  Age: 23 Year
  Sex: Male
  Weight: 60 kg

DRUGS (2)
  1. IBUPROFEN [Suspect]
     Active Substance: IBUPROFEN
     Indication: Pyrexia
     Dosage: 6 (200MG TABLET) A DAY
     Dates: end: 20241030
  2. IBUPROFEN [Suspect]
     Active Substance: IBUPROFEN
     Indication: Lower respiratory tract infection

REACTIONS (6)
  - Upper gastrointestinal haemorrhage [Recovering/Resolving]
  - Medication error [Unknown]
  - Product use in unapproved indication [Unknown]
  - Haematemesis [Unknown]
  - Haemoptysis [Unknown]
  - Melaena [Unknown]
